FAERS Safety Report 9204179 (Version 1)
Quarter: 2013Q2

REPORT INFORMATION
  Report Type: Spontaneous
  Country: US (occurrence: None)
  Receive Date: 20130401
  Receipt Date: 20130401
  Transmission Date: 20140414
  Serious: Yes (Death)
  Sender: FDA-Public Use
  Company Number: None

PATIENT
  Age: 19 Year
  Sex: Female
  Weight: 74.84 kg

DRUGS (2)
  1. IMPLANON, 68 MG ETONOGESTREL [Suspect]
     Indication: CONTRACEPTION
     Dosage: IMPLANTED 12-2011
     Dates: start: 201112
  2. ZONIG (ZOLMITRIPTAN) PRN [Concomitant]

REACTIONS (1)
  - Pulmonary embolism [None]
